FAERS Safety Report 20541243 (Version 1)
Quarter: 2022Q1

REPORT INFORMATION
  Report Type: Report from Study
  Country: CO (occurrence: CO)
  Receive Date: 20220302
  Receipt Date: 20220302
  Transmission Date: 20220423
  Serious: Yes (Life-Threatening, Hospitalization)
  Sender: FDA-Public Use
  Company Number: CO-JNJFOC-20211013050

PATIENT
  Age: 56 Year
  Sex: Male
  Weight: 63 kg

DRUGS (3)
  1. DARATUMUMAB [Suspect]
     Active Substance: DARATUMUMAB
     Indication: Plasma cell myeloma
     Dosage: LAST DATE ADMINISTERED ON 27-SEP-2021.
     Route: 042
     Dates: start: 20200717
  2. COVID-19 VACCINE [Concomitant]
     Indication: Product used for unknown indication
     Dosage: FIRST DOSE
     Route: 065
     Dates: start: 20210531
  3. COVID-19 VACCINE [Concomitant]
     Dosage: SECOND DOSE
     Route: 065
     Dates: start: 20210621

REACTIONS (7)
  - Anaemia [Not Recovered/Not Resolved]
  - Blood glucose increased [Not Recovered/Not Resolved]
  - Burning sensation [Not Recovered/Not Resolved]
  - General physical health deterioration [Not Recovered/Not Resolved]
  - Urinary retention [Not Recovered/Not Resolved]
  - Pain [Not Recovered/Not Resolved]
  - Bacterial infection [Not Recovered/Not Resolved]

NARRATIVE: CASE EVENT DATE: 20211002
